FAERS Safety Report 24528910 (Version 1)
Quarter: 2024Q4

REPORT INFORMATION
  Report Type: Spontaneous
  Country: CN (occurrence: CN)
  Receive Date: 20241021
  Receipt Date: 20241021
  Transmission Date: 20250115
  Serious: Yes (Other)
  Sender: EPIC PHARM
  Company Number: CN-EPICPHARMA-CN-2024EPCLIT01255

PATIENT
  Age: 43 Year
  Sex: Female

DRUGS (5)
  1. EPIRUBICIN HYDROCHLORIDE [Suspect]
     Active Substance: EPIRUBICIN HYDROCHLORIDE
     Indication: Diffuse large B-cell lymphoma
     Route: 065
  2. RITUXIMAB [Suspect]
     Active Substance: RITUXIMAB
     Indication: Diffuse large B-cell lymphoma
     Route: 065
  3. CYCLOPHOSPHAMIDE [Suspect]
     Active Substance: CYCLOPHOSPHAMIDE
     Indication: Diffuse large B-cell lymphoma
     Route: 065
  4. VINDESINE [Suspect]
     Active Substance: VINDESINE
     Indication: Diffuse large B-cell lymphoma
     Route: 065
  5. PREDNISONE [Suspect]
     Active Substance: PREDNISONE
     Indication: Diffuse large B-cell lymphoma
     Route: 065

REACTIONS (2)
  - Reversible cerebral vasoconstriction syndrome [Recovered/Resolved]
  - Product use in unapproved indication [Unknown]
